FAERS Safety Report 24105868 (Version 1)
Quarter: 2024Q3

REPORT INFORMATION
  Report Type: Spontaneous
  Country: JP (occurrence: None)
  Receive Date: 20240717
  Receipt Date: 20240717
  Transmission Date: 20241016
  Serious: Yes (Death)
  Sender: ASTRAZENECA
  Company Number: 2024A158701

PATIENT
  Age: 93 Year
  Sex: Female

DRUGS (1)
  1. ONDEXXYA [Suspect]
     Active Substance: ANDEXANET ALFA
     Indication: Subdural haematoma
     Dosage: DOSE UNKNOWN
     Route: 042
     Dates: start: 20230727, end: 20230727

REACTIONS (2)
  - Haemorrhage [Fatal]
  - Multiple injuries [Fatal]

NARRATIVE: CASE EVENT DATE: 20230727
